FAERS Safety Report 8571889-X (Version None)
Quarter: 2012Q3

REPORT INFORMATION
  Report Type: 
  Country: None (occurrence: None)
  Receive Date: 20120806
  Receipt Date: 20120502
  Transmission Date: 20120928
  Serious: Yes (Hospitalization, Other)
  Sender: FDA-Public Use
  Company Number: US-009507513-2011SP046655

PATIENT

DRUGS (4)
  1. NUVARING [Suspect]
     Indication: CONTRACEPTION
     Dates: start: 20060101, end: 20091019
  2. NUVARING [Suspect]
     Indication: MENSTRUAL DISORDER
     Dates: end: 20080801
  3. CORTICOSTEROIDS (UNSPECIFIED) [Suspect]
     Indication: COLITIS
     Dates: start: 20091001
  4. NUVARING [Suspect]
     Indication: DYSMENORRHOEA
     Dates: start: 20080901

REACTIONS (18)
  - ENTEROCOLITIS INFECTIOUS [None]
  - DEEP VEIN THROMBOSIS [None]
  - MIGRAINE [None]
  - PAPILLOMA VIRAL INFECTION [None]
  - HERPES ZOSTER [None]
  - ANXIETY [None]
  - DYSPNOEA [None]
  - DIZZINESS [None]
  - ANTIPHOSPHOLIPID ANTIBODIES POSITIVE [None]
  - AFFECT LABILITY [None]
  - EMOTIONAL DISTRESS [None]
  - H1N1 INFLUENZA [None]
  - PULMONARY EMBOLISM [None]
  - KERATOMILEUSIS [None]
  - CERVICAL DYSPLASIA [None]
  - HYPERCOAGULATION [None]
  - MONONUCLEOSIS SYNDROME [None]
  - METRORRHAGIA [None]
